FAERS Safety Report 11934713 (Version 1)
Quarter: 2016Q1

REPORT INFORMATION
  Report Type: Spontaneous
  Country: SI (occurrence: SI)
  Receive Date: 20160121
  Receipt Date: 20160121
  Transmission Date: 20160526
  Serious: Yes (Hospitalization, Disabling)
  Sender: FDA-Public Use
  Company Number: SI-ROCHE-1698232

PATIENT
  Age: 61 Year
  Sex: Female

DRUGS (4)
  1. ATORVASTATIN [Concomitant]
     Active Substance: ATORVASTATIN
     Dosage: DRUG REPORTED AS: TULIP
     Route: 065
  2. ASPIRIN PROTECT [Concomitant]
     Active Substance: ASPIRIN
     Route: 065
  3. BONVIVA [Suspect]
     Active Substance: IBANDRONATE SODIUM
     Indication: OSTEOPOROSIS
     Dosage: 1X/MONTH
     Route: 048
     Dates: start: 20030101, end: 20160106
  4. PERINDOPRIL [Concomitant]
     Active Substance: PERINDOPRIL
     Dosage: DRUG REPORTED AS: VOXIN
     Route: 065

REACTIONS (1)
  - Femur fracture [Unknown]

NARRATIVE: CASE EVENT DATE: 20160105
